FAERS Safety Report 14257384 (Version 1)
Quarter: 2017Q4

REPORT INFORMATION
  Report Type: Report from Study
  Country: DE (occurrence: DE)
  Receive Date: 20171207
  Receipt Date: 20171207
  Transmission Date: 20180321
  Serious: Yes (Other)
  Sender: FDA-Public Use
  Company Number: DE-AMGEN-DEUCT2017180171

PATIENT
  Age: 26 Year
  Sex: Female
  Weight: 153 kg

DRUGS (4)
  1. ETANERCEPT [Suspect]
     Active Substance: ETANERCEPT
     Indication: AXIAL SPONDYLOARTHRITIS
     Dosage: 50 MG, QWK
     Route: 058
     Dates: start: 20160730, end: 201612
  2. L-THYROXIN [Concomitant]
     Active Substance: LEVOTHYROXINE SODIUM
     Indication: AUTOIMMUNE THYROIDITIS
     Dosage: 100 MUG, QD
     Route: 048
     Dates: start: 201406
  3. PROGESTERONE. [Concomitant]
     Active Substance: PROGESTERONE
     Indication: UTERINE HAEMATOMA
     Dosage: 200 MG, DAILY
     Route: 048
     Dates: start: 20170204
  4. PREDNISOLONE. [Concomitant]
     Active Substance: PREDNISOLONE
     Indication: SPONDYLITIS
     Dosage: 5 MG, DAILY
     Route: 048
     Dates: start: 201701

REACTIONS (3)
  - Oligohydramnios [Recovered/Resolved]
  - Uterine haematoma [Recovered/Resolved]
  - Abortion spontaneous [Unknown]

NARRATIVE: CASE EVENT DATE: 20170123
